FAERS Safety Report 14518107 (Version 1)
Quarter: 2018Q1

REPORT INFORMATION
  Report Type: Spontaneous
  Country: US (occurrence: US)
  Receive Date: 20180212
  Receipt Date: 20180212
  Transmission Date: 20180509
  Serious: No
  Sender: FDA-Public Use
  Company Number: US-009507513-1802USA004347

PATIENT
  Age: 32 Year
  Sex: Female
  Weight: 57.6 kg

DRUGS (1)
  1. NEXPLANON [Suspect]
     Active Substance: ETONOGESTREL
     Indication: CONTRACEPTION
     Dosage: INSERTION IN LEFT ARM, 3 YEARS
     Route: 059
     Dates: start: 20171226

REACTIONS (3)
  - Weight increased [Unknown]
  - Breast atrophy [Unknown]
  - Mood swings [Unknown]

NARRATIVE: CASE EVENT DATE: 201801
